FAERS Safety Report 8058713-9 (Version None)
Quarter: 2012Q1

REPORT INFORMATION
  Report Type: 
  Country: None (occurrence: None)
  Receive Date: 20120120
  Receipt Date: 20120113
  Transmission Date: 20120608
  Serious: No
  Sender: FDA-Public Use
  Company Number: US-PFIZER INC-2012010766

PATIENT
  Age: 86 Year
  Sex: Female

DRUGS (1)
  1. AMLODIPINE BESYLATE [Suspect]
     Dosage: 2.5 MG, 1X/DAY

REACTIONS (8)
  - BLOOD PRESSURE ABNORMAL [None]
  - HEAD DISCOMFORT [None]
  - DRUG INEFFECTIVE [None]
  - HEADACHE [None]
  - LETHARGY [None]
  - FATIGUE [None]
  - SOMNOLENCE [None]
  - DIZZINESS [None]
